FAERS Safety Report 20193149 (Version 1)
Quarter: 2021Q4

REPORT INFORMATION
  Report Type: Spontaneous
  Country: US (occurrence: US)
  Receive Date: 20211216
  Receipt Date: 20211216
  Transmission Date: 20220303
  Serious: No
  Sender: FDA-Public Use
  Company Number: US-ENDO PHARMACEUTICALS INC-2021-011093

PATIENT
  Sex: Male

DRUGS (4)
  1. XIAFLEX [Suspect]
     Active Substance: COLLAGENASE CLOSTRIDIUM HISTOLYTICUM
     Indication: Peyronie^s disease
     Dosage: 0.9 MG, UNKNOWN; CYCLE ONE INJECTION ONE
     Route: 065
     Dates: start: 20210406
  2. XIAFLEX [Suspect]
     Active Substance: COLLAGENASE CLOSTRIDIUM HISTOLYTICUM
     Dosage: 0.9 MG, UNKNOWN; CYCLE ONE INJECTION TWO
     Route: 065
  3. XIAFLEX [Suspect]
     Active Substance: COLLAGENASE CLOSTRIDIUM HISTOLYTICUM
     Dosage: 0.9 MG, UNKNOWN; CYCLE TWO INJECTION ONE
     Route: 065
  4. XIAFLEX [Suspect]
     Active Substance: COLLAGENASE CLOSTRIDIUM HISTOLYTICUM
     Dosage: 0.9 MG, UNKNOWN; CYCLE TWO INJECTION TWO
     Route: 065

REACTIONS (3)
  - Swelling [Unknown]
  - Discomfort [Unknown]
  - Contusion [Unknown]
